FAERS Safety Report 4761217-X (Version None)
Quarter: 2005Q3

REPORT INFORMATION
  Report Type: 
  Country: None (occurrence: None)
  Receive Date: 20050830
  Receipt Date: 20050627
  Transmission Date: 20060218
  Serious: No
  Sender: FDA-Public Use
  Company Number: FABR-11152

PATIENT
  Age: 51 Year
  Sex: Male
  Weight: 62.2 kg

DRUGS (4)
  1. FABRAZYME [Suspect]
     Indication: FABRY'S DISEASE
     Dosage: 70 MG Q2WKS IV
     Route: 042
     Dates: start: 20041229
  2. LASIX [Concomitant]
  3. ALTACE [Concomitant]
  4. MOTRIN [Concomitant]

REACTIONS (1)
  - BODY TEMPERATURE INCREASED [None]
